FAERS Safety Report 9755043 (Version 1)
Quarter: 2013Q4

REPORT INFORMATION
  Report Type: Spontaneous
  Country: US (occurrence: US)
  Receive Date: 20131213
  Receipt Date: 20131213
  Transmission Date: 20140711
  Serious: No
  Sender: FDA-Public Use
  Company Number: US-GLAXOSMITHKLINE-A1010529A

PATIENT
  Age: 70 Year
  Sex: Female

DRUGS (2)
  1. NICODERM CQ PATCH, CLEAR [Suspect]
     Indication: EX-TOBACCO USER
  2. NICORETTE OTC, UNSPECIFIED [Suspect]
     Indication: EX-TOBACCO USER

REACTIONS (7)
  - Dermatitis contact [Recovered/Resolved]
  - Application site swelling [Recovered/Resolved]
  - Application site urticaria [Recovered/Resolved]
  - Nightmare [Recovered/Resolved]
  - Cold sweat [Recovered/Resolved]
  - Nonspecific reaction [Recovered/Resolved]
  - Drug administration error [Unknown]
